FAERS Safety Report 6713806-0 (Version None)
Quarter: 2010Q2

REPORT INFORMATION
  Report Type: 
  Country: None (occurrence: None)
  Receive Date: 20100503
  Receipt Date: 20100417
  Transmission Date: 20101027
  Serious: Yes (Death, Hospitalization)
  Sender: FDA-Public Use
  Company Number: 2010040163

PATIENT
  Age: 63 Year
  Sex: Female
  Weight: 60.8 kg

DRUGS (7)
  1. SORAFENIB TOSILATE (SORAFENIB TOSILATE) UNKNOWN [Suspect]
     Indication: METASTATIC RENAL CELL CARCINOMA
     Dosage: 400 MG, 2X/DAY
     Dates: start: 20100309, end: 20100324
  2. FRAGMIN [Suspect]
     Indication: ANTICOAGULATION DRUG LEVEL
     Dosage: 12500 IU, 1X/DAY, SUBCUTANEOUS
     Route: 058
     Dates: start: 20081208, end: 20100325
  3. METOCLOPRAMIDE (METOCLOPRAMIDE) [Concomitant]
  4. LEVOTHYROXINE SODIUM [Concomitant]
  5. CYCLIZINE (CYCLIZINE) [Concomitant]
  6. TRAZODONE HCL [Concomitant]
  7. TEMAZEPAM [Concomitant]

REACTIONS (13)
  - CIRCULATORY COLLAPSE [None]
  - DRUG INTERACTION [None]
  - GENERAL PHYSICAL HEALTH DETERIORATION [None]
  - HEAD INJURY [None]
  - LEFT VENTRICULAR HYPERTROPHY [None]
  - LIVIDITY [None]
  - METASTASES TO LYMPH NODES [None]
  - PERIORBITAL HAEMATOMA [None]
  - PULMONARY CONGESTION [None]
  - PULMONARY OEDEMA [None]
  - RENAL FAILURE [None]
  - RETROPERITONEAL HAEMORRHAGE [None]
  - SEPSIS SYNDROME [None]
